FAERS Safety Report 11133119 (Version 1)
Quarter: 2015Q2

REPORT INFORMATION
  Report Type: Spontaneous
  Country: US (occurrence: US)
  Receive Date: 20150522
  Receipt Date: 20150522
  Transmission Date: 20150821
  Serious: No
  Sender: FDA-Public Use
  Company Number: US-TEVA-561583USA

PATIENT

DRUGS (1)
  1. QNASL [Suspect]
     Active Substance: BECLOMETHASONE DIPROPIONATE
     Dosage: 2 SPRAYS IN EACH NOSTRIL ONCE DAILY
     Route: 045

REACTIONS (2)
  - Nasal discomfort [Unknown]
  - Nasal mucosal disorder [Unknown]
